FAERS Safety Report 10250918 (Version 2)
Quarter: 2014Q2

REPORT INFORMATION
  Report Type: Spontaneous
  Country: GB (occurrence: GB)
  Receive Date: 20140620
  Receipt Date: 20140620
  Transmission Date: 20141212
  Serious: Yes (Hospitalization, Other)
  Sender: FDA-Public Use
  Company Number: GB-BRISTOL-MYERS SQUIBB COMPANY-16859001

PATIENT
  Age: 69 Year
  Sex: Female

DRUGS (1)
  1. YERVOY [Suspect]
     Indication: MALIGNANT MELANOMA
     Dates: start: 20120301

REACTIONS (3)
  - Diarrhoea [Recovering/Resolving]
  - Colitis [Unknown]
  - Pneumocystis jirovecii pneumonia [Unknown]
